FAERS Safety Report 10656289 (Version 1)
Quarter: 2014Q4

REPORT INFORMATION
  Report Type: Spontaneous
  Country: JP (occurrence: JP)
  Receive Date: 20141216
  Receipt Date: 20141216
  Transmission Date: 20150529
  Serious: Yes (Other)
  Sender: FDA-Public Use
  Company Number: PHHY2014JP161649

PATIENT
  Age: 15 Year
  Sex: Male
  Weight: 16.7 kg

DRUGS (2)
  1. CARBAMAZEPINE. [Concomitant]
     Active Substance: CARBAMAZEPINE
     Indication: SEIZURE
     Route: 065
  2. VALPROATE SODIUM. [Suspect]
     Active Substance: VALPROATE SODIUM
     Indication: SEIZURE
     Dosage: 34 MG/KG, QD
     Route: 065

REACTIONS (10)
  - Fanconi syndrome [Recovered/Resolved]
  - Hypokalaemia [Recovered/Resolved]
  - Glycosuria [Recovered/Resolved]
  - Aminoaciduria [Recovered/Resolved]
  - Hypophosphataemia [Recovered/Resolved]
  - Pyrexia [Recovered/Resolved]
  - Hypocarnitinaemia [Recovered/Resolved]
  - Proteinuria [Recovered/Resolved]
  - Weight decreased [Recovered/Resolved]
  - Hypouricaemia [Recovered/Resolved]
